FAERS Safety Report 4701161-7 (Version None)
Quarter: 2005Q2

REPORT INFORMATION
  Report Type: 
  Country: None (occurrence: None)
  Receive Date: 20050628
  Receipt Date: 20050621
  Transmission Date: 20051028
  Serious: Yes (Hospitalization)
  Sender: FDA-Public Use
  Company Number: JP-GLAXOSMITHKLINE-B0385499A

PATIENT
  Age: 78 Year
  Sex: Female

DRUGS (10)
  1. VALTREX [Suspect]
     Indication: HERPES ZOSTER
     Dosage: 1000MG THREE TIMES PER DAY
     Route: 048
     Dates: start: 20050613, end: 20050615
  2. NORVASC [Concomitant]
     Route: 048
  3. PREDNISOLONE [Concomitant]
     Route: 065
  4. TAKEPRON [Concomitant]
     Route: 048
  5. CLARITHROMYCIN [Concomitant]
     Route: 048
  6. MUCODYNE [Concomitant]
     Route: 048
  7. DEPAS [Concomitant]
     Route: 048
  8. MAGLAX [Concomitant]
     Route: 048
  9. ALFAROL [Concomitant]
     Route: 048
  10. NOLVADEX [Concomitant]
     Route: 048

REACTIONS (2)
  - PSYCHIATRIC SYMPTOM [None]
  - RENAL IMPAIRMENT [None]
